FAERS Safety Report 7054021-3 (Version None)
Quarter: 2010Q4

REPORT INFORMATION
  Report Type: 
  Country: None (occurrence: None)
  Receive Date: 20101020
  Receipt Date: 20101011
  Transmission Date: 20110411
  Serious: Yes (Hospitalization)
  Sender: FDA-Public Use
  Company Number: HU-TEVA-251986ISR

PATIENT
  Age: 78 Year
  Sex: Male

DRUGS (2)
  1. TRAMADOL HCL [Suspect]
     Indication: BONE PAIN
  2. CLARITHROMYCIN [Interacting]
     Indication: INFLAMMATION

REACTIONS (2)
  - DRUG INTERACTION [None]
  - HALLUCINATION [None]
